FAERS Safety Report 7101168-9 (Version None)
Quarter: 2010Q4

REPORT INFORMATION
  Report Type: 
  Country: None (occurrence: None)
  Receive Date: 20101105
  Receipt Date: 20101022
  Transmission Date: 20110411
  Serious: Yes (Hospitalization)
  Sender: FDA-Public Use
  Company Number: 020025

PATIENT

DRUGS (2)
  1. CIMZIA [Suspect]
     Indication: CROHN'S DISEASE
     Dosage: (200 MG 1X/2 WEEKS, NBR OF DOSES: 2 SUBCUTANEOUS)
     Route: 058
     Dates: start: 20100923
  2. PREVACID [Concomitant]

REACTIONS (7)
  - DIARRHOEA [None]
  - FATIGUE [None]
  - NEUTROPHIL PERCENTAGE INCREASED [None]
  - PALLOR [None]
  - SALMONELLA TEST POSITIVE [None]
  - THROAT IRRITATION [None]
  - VOMITING [None]
